FAERS Safety Report 18855054 (Version 1)
Quarter: 2021Q1

REPORT INFORMATION
  Report Type: Report from Study
  Country: DE (occurrence: DE)
  Receive Date: 20210206
  Receipt Date: 20210206
  Transmission Date: 20210420
  Serious: Yes (Other)
  Sender: FDA-Public Use
  Company Number: DE-AMGEN-DEUNI2021017933

PATIENT
  Age: 84 Year
  Sex: Female
  Weight: 74 kg

DRUGS (17)
  1. PANITUMUMAB [Suspect]
     Active Substance: PANITUMUMAB
     Dosage: 410 MILLIGRAM
     Route: 042
     Dates: start: 20190506
  2. FOLINIC ACID [Suspect]
     Active Substance: LEUCOVORIN
     Dosage: 500 MILLIGRAM
     Route: 065
     Dates: start: 20190415
  3. FLUOROURACIL. [Suspect]
     Active Substance: FLUOROURACIL
     Dosage: 2940 MILLIGRAM
     Route: 042
     Dates: start: 20190304
  4. FOLINIC ACID [Suspect]
     Active Substance: LEUCOVORIN
     Indication: COLORECTAL CANCER METASTATIC
     Dosage: 500 MILLIGRAM
     Route: 065
     Dates: start: 20190114
  5. FLUOROURACIL. [Suspect]
     Active Substance: FLUOROURACIL
     Dosage: 2970 MILLIGRAM
     Route: 042
     Dates: start: 20190318
  6. FOLINIC ACID [Suspect]
     Active Substance: LEUCOVORIN
     Dosage: 490 MILLIGRAM
     Route: 065
     Dates: start: 20190506
  7. OXALIPLATIN. [Suspect]
     Active Substance: OXALIPLATIN
     Indication: COLORECTAL CANCER METASTATIC
     Dosage: 110 MILLIGRAM
     Route: 065
     Dates: start: 20190114
  8. ASS?RATIOPHARM [Concomitant]
     Active Substance: ASPIRIN
     Indication: CEREBROVASCULAR ACCIDENT
     Dosage: 100 GRAM, QD
     Route: 048
  9. FLUOROURACIL. [Suspect]
     Active Substance: FLUOROURACIL
     Indication: COLORECTAL CANCER METASTATIC
     Dosage: 2990 MILLIGRAM
     Route: 042
     Dates: start: 20190114
  10. PANITUMUMAB [Suspect]
     Active Substance: PANITUMUMAB
     Indication: COLORECTAL CANCER METASTATIC
     Dosage: 430 MILLIGRAM
     Route: 042
     Dates: start: 20190114
  11. PANITUMUMAB [Suspect]
     Active Substance: PANITUMUMAB
     Dosage: 400 MILLIGRAM
     Route: 042
     Dates: start: 20190211
  12. PANITUMUMAB [Suspect]
     Active Substance: PANITUMUMAB
     Dosage: 410 MILLIGRAM
     Route: 042
     Dates: start: 20190304
  13. PANITUMUMAB [Suspect]
     Active Substance: PANITUMUMAB
     Dosage: 420 MILLIGRAM
     Route: 042
     Dates: start: 20190318
  14. FOLINIC ACID [Suspect]
     Active Substance: LEUCOVORIN
     Dosage: 490 MILLIGRAM
     Route: 065
     Dates: start: 20190211
  15. FLUOROURACIL. [Suspect]
     Active Substance: FLUOROURACIL
     Dosage: 2920 MILLIGRAM
     Route: 042
     Dates: start: 20190211
  16. OXALIPLATIN. [Suspect]
     Active Substance: OXALIPLATIN
     Dosage: 100 MILLIGRAM
     Route: 065
     Dates: start: 20190211
  17. FLUOROURACIL. [Suspect]
     Active Substance: FLUOROURACIL
     Dosage: 2960 MILLIGRAM
     Route: 042
     Dates: start: 20190506

REACTIONS (1)
  - Erysipelas [Recovered/Resolved]

NARRATIVE: CASE EVENT DATE: 20190513
